FAERS Safety Report 11876352 (Version 1)
Quarter: 2015Q4

REPORT INFORMATION
  Report Type: Spontaneous
  Country: CN (occurrence: CN)
  Receive Date: 20151229
  Receipt Date: 20151229
  Transmission Date: 20160305
  Serious: Yes (Other)
  Sender: FDA-Public Use
  Company Number: CN-JNJFOC-20151222188

PATIENT
  Age: 76 Year
  Sex: Female

DRUGS (4)
  1. SPORANOX [Suspect]
     Active Substance: ITRACONAZOLE
     Indication: VARICOSE VEIN
     Dosage: 1 CAPSULE
     Route: 048
     Dates: start: 2007
  2. SPORANOX [Suspect]
     Active Substance: ITRACONAZOLE
     Indication: BACK PAIN
     Dosage: 1 CAPSULE
     Route: 048
     Dates: start: 2007
  3. SPORANOX [Suspect]
     Active Substance: ITRACONAZOLE
     Indication: TOOTHACHE
     Dosage: 1 CAPSULE
     Route: 048
     Dates: start: 2007
  4. SPORANOX [Suspect]
     Active Substance: ITRACONAZOLE
     Indication: SKIN EXFOLIATION
     Dosage: 1 CAPSULE
     Route: 048
     Dates: start: 2007

REACTIONS (4)
  - Angina pectoris [Recovered/Resolved]
  - Therapeutic response unexpected [Unknown]
  - Off label use [Unknown]
  - Product use issue [Unknown]
